FAERS Safety Report 4701748-1 (Version None)
Quarter: 2005Q2

REPORT INFORMATION
  Report Type: 
  Country: None (occurrence: None)
  Receive Date: 20050627
  Receipt Date: 20050616
  Transmission Date: 20051028
  Serious: Yes (Hospitalization)
  Sender: FDA-Public Use
  Company Number: 2005089524

PATIENT
  Sex: Male

DRUGS (3)
  1. ACCUPRIL [Suspect]
     Indication: ILL-DEFINED DISORDER
     Dosage: 40 MG (DAILY)
  2. NORVASC [Suspect]
     Indication: ILL-DEFINED DISORDER
  3. PREDNISONE TAB [Suspect]
     Indication: ILL-DEFINED DISORDER

REACTIONS (1)
  - PULMONARY OEDEMA [None]
